FAERS Safety Report 11265208 (Version 4)
Quarter: 2015Q3

REPORT INFORMATION
  Report Type: Report from Study
  Country: UA (occurrence: UA)
  Receive Date: 20150713
  Receipt Date: 20150805
  Transmission Date: 20151125
  Serious: Yes (Other)
  Sender: FDA-Public Use
  Company Number: UA-ROCHE-1603697

PATIENT
  Age: 5 Year
  Sex: Male
  Weight: 17.2 kg

DRUGS (5)
  1. LORATADINE. [Concomitant]
     Active Substance: LORATADINE
     Indication: DERMATITIS ATOPIC
     Route: 065
     Dates: start: 20150520, end: 20150529
  2. ANGIN-HEEL [Concomitant]
     Indication: NASOPHARYNGITIS
     Route: 065
     Dates: start: 20150719, end: 20150730
  3. NASIVIN (UKRAINE) [Concomitant]
     Indication: NASOPHARYNGITIS
     Route: 065
     Dates: start: 20150719, end: 20150724
  4. PEG-INTERFERON ALFA 2A [Suspect]
     Active Substance: PEGINTERFERON ALFA-2A
     Indication: CHRONIC HEPATITIS B
     Dosage: DATE OF LAST DOSE PRIOR TO EVENT- 04/JUN/2015 AND DOSE- 65 UG.
     Route: 058
     Dates: start: 20150114
  5. AMBROXOLUM [Concomitant]
     Indication: BRONCHITIS
     Route: 065
     Dates: start: 201308, end: 201308

REACTIONS (1)
  - Nephropathy [Not Recovered/Not Resolved]

NARRATIVE: CASE EVENT DATE: 20150610
